FAERS Safety Report 7361186-2 (Version None)
Quarter: 2011Q1

REPORT INFORMATION
  Report Type: 
  Country: None (occurrence: None)
  Receive Date: 20110318
  Receipt Date: 20110315
  Transmission Date: 20110831
  Serious: Yes (Death, Other)
  Sender: FDA-Public Use
  Company Number: GB-B.I. PHARMACEUTICALS,INC./RIDGEFIELD-2011-UK-00280UK

PATIENT
  Age: 69 Year
  Sex: Female
  Weight: 65 kg

DRUGS (3)
  1. PRADAXA [Suspect]
     Indication: KNEE ARTHROPLASTY
     Dosage: 220 MG
     Route: 048
     Dates: start: 20110225
  2. FRAGMIN [Concomitant]
     Indication: POSTOPERATIVE CARE
     Dosage: 5000 U
  3. ANAESTHETICS NOS [Concomitant]

REACTIONS (3)
  - HAEMORRHAGE [None]
  - ABDOMINAL RIGIDITY [None]
  - BLOOD SODIUM DECREASED [None]
